FAERS Safety Report 13047273 (Version 2)
Quarter: 2016Q4

REPORT INFORMATION
  Report Type: Spontaneous
  Country: NO (occurrence: NO)
  Receive Date: 20161220
  Receipt Date: 20161227
  Transmission Date: 20170207
  Serious: Yes (Congenital Anomaly, Other)
  Sender: FDA-Public Use
  Company Number: NO-UCBSA-2016047785

PATIENT
  Age: 0 Year
  Sex: Male
  Weight: 2.68 kg

DRUGS (10)
  1. TRILEPTAL [Suspect]
     Active Substance: OXCARBAZEPINE
     Indication: EPILEPSY
     Dosage: 1200 MG DAILY (600 MG X2)
     Route: 063
  2. VALPROIC ACID. [Suspect]
     Active Substance: VALPROIC ACID
     Indication: EPILEPSY
     Dosage: 1200 MG DAILY (600 MG X2)
     Route: 064
     Dates: start: 20060912
  3. KEPPRA [Suspect]
     Active Substance: LEVETIRACETAM
     Indication: EPILEPSY
     Dosage: 1500 MG DAILY (500 + 1000 MG)UNK
     Route: 063
  4. ORFIRIL [Suspect]
     Active Substance: VALPROIC ACID
     Indication: EPILEPSY
     Dosage: 1200 MG DAILY (600 MG X2)
     Route: 064
     Dates: start: 20060912, end: 20070430
  5. KEPPRA [Suspect]
     Active Substance: LEVETIRACETAM
     Indication: EPILEPSY
     Dosage: 1500 MG DAILY (500 + 1000 MG)
     Route: 064
     Dates: start: 20060912, end: 20070430
  6. TRILEPTAL [Suspect]
     Active Substance: OXCARBAZEPINE
     Indication: EPILEPSY
     Dosage: 1200 MG DAILY (600 MG X2)
     Route: 064
     Dates: start: 20060912, end: 20070430
  7. VALPROIC ACID. [Suspect]
     Active Substance: VALPROIC ACID
     Dosage: 1200 MG DAILY (600 MG X2)UNK
     Route: 064
     Dates: end: 20070930
  8. VALPROIC ACID. [Suspect]
     Active Substance: VALPROIC ACID
     Indication: EPILEPSY
     Dosage: 1200 MG DAILY (600 MG X2)UNK
     Route: 063
  9. VALPROIC ACID. [Suspect]
     Active Substance: VALPROIC ACID
     Dosage: 300+600MG DAILY
     Route: 064
  10. FOLIC ACID. [Concomitant]
     Active Substance: FOLIC ACID
     Indication: PRODUCT USED FOR UNKNOWN INDICATION
     Dosage: 800 MICROGRAM DAILY
     Dates: start: 20060720, end: 20070210

REACTIONS (10)
  - Foetal exposure during pregnancy [Unknown]
  - Hypotonia [Unknown]
  - Autism [Unknown]
  - Premature baby [Recovered/Resolved]
  - Polydactyly [Unknown]
  - Jaundice [Unknown]
  - Neonatal respiratory distress syndrome [Unknown]
  - Exposure during breast feeding [Unknown]
  - Cyanosis [Unknown]
  - Arnold-Chiari malformation [Unknown]

NARRATIVE: CASE EVENT DATE: 20060912
